FAERS Safety Report 4566809-9 (Version None)
Quarter: 2005Q1

REPORT INFORMATION
  Report Type: 
  Country: None (occurrence: None)
  Receive Date: 20050201
  Receipt Date: 20020102
  Transmission Date: 20050727
  Serious: Yes (Other)
  Sender: FDA-Public Use
  Company Number: US-BRISTOL-MYERS SQUIBB COMPANY-11766839

PATIENT
  Sex: Female

DRUGS (10)
  1. STADOL [Suspect]
     Dosage: DURATION: LESS THAN 6 MONTHS
     Route: 045
  2. STADOL [Suspect]
     Dosage: ROUTE: IV AND IM
     Route: 042
  3. VALIUM [Suspect]
  4. HYDROCODONE [Suspect]
  5. PHENERGAN [Concomitant]
  6. KLONOPIN [Concomitant]
  7. LASIX [Concomitant]
  8. SOMA [Concomitant]
  9. ZOLOFT [Concomitant]
  10. VICODIN [Concomitant]

REACTIONS (2)
  - DEPENDENCE [None]
  - DRUG WITHDRAWAL SYNDROME [None]
